FAERS Safety Report 8955550 (Version 1)
Quarter: 2012Q4

REPORT INFORMATION
  Report Type: 
  Country: US (occurrence: US)
  Receive Date: 20121207
  Receipt Date: 20121207
  Transmission Date: 20130627
  Serious: No
  Sender: FDA-Public Use
  Company Number: US-PFIZER INC-2012305295

PATIENT
  Age: 25 Year
  Sex: Female
  Weight: 60.32 kg

DRUGS (2)
  1. IBUPROFEN [Suspect]
     Dosage: UNK
  2. AMPYRA [Interacting]
     Dosage: 10 mg, twice daily
     Route: 048
     Dates: start: 201206

REACTIONS (3)
  - Drug interaction [Unknown]
  - Headache [Unknown]
  - Limb discomfort [Unknown]
